FAERS Safety Report 9817630 (Version 3)
Quarter: 2014Q1

REPORT INFORMATION
  Report Type: Report from Study
  Country: FR (occurrence: FR)
  Receive Date: 20140115
  Receipt Date: 20140131
  Transmission Date: 20141002
  Serious: Yes (Hospitalization)
  Sender: FDA-Public Use
  Company Number: FR-ROCHE-1164292

PATIENT
  Age: 70 Year
  Sex: Female

DRUGS (7)
  1. RITUXIMAB [Suspect]
     Indication: RHEUMATOID ARTHRITIS
     Route: 065
     Dates: start: 20080630
  2. RITUXIMAB [Suspect]
     Route: 065
     Dates: start: 20080716
  3. RITUXIMAB [Suspect]
     Route: 065
     Dates: start: 20091214
  4. RITUXIMAB [Suspect]
     Route: 065
     Dates: start: 20100108
  5. METHOTREXATE [Concomitant]
     Route: 065
     Dates: start: 20100108
  6. CORTANCYL [Concomitant]
     Route: 065
     Dates: start: 20080716
  7. CORTANCYL [Concomitant]
     Route: 065
     Dates: start: 20100108

REACTIONS (9)
  - Diabetic coma [Recovered/Resolved]
  - Inflammation [Recovered/Resolved]
  - Skin lesion [Not Recovered/Not Resolved]
  - Colitis [Recovered/Resolved]
  - Renal failure [Not Recovered/Not Resolved]
  - Fall [Unknown]
  - Prurigo [Not Recovered/Not Resolved]
  - Bone abscess [Recovered/Resolved]
  - Eczema [Not Recovered/Not Resolved]
